FAERS Safety Report 5235357-5 (Version None)
Quarter: 2007Q1

REPORT INFORMATION
  Report Type: 
  Country: None (occurrence: None)
  Receive Date: 20070209
  Receipt Date: 20070209
  Transmission Date: 20070707
  Serious: No
  Sender: FDA-Public Use
  Company Number: None

PATIENT
  Age: 67 Year
  Sex: Female

DRUGS (2)
  1. SINEMET [Suspect]
     Dosage: TABLET  VIAL, DISPENSING 30 TABS
  2. SINEMET [Suspect]
     Dosage: TABLET  VIAL

REACTIONS (2)
  - INTERCEPTED DRUG DISPENSING ERROR [None]
  - MEDICATION ERROR [None]
